FAERS Safety Report 20369152 (Version 1)
Quarter: 2022Q1

REPORT INFORMATION
  Report Type: Spontaneous
  Country: US (occurrence: None)
  Receive Date: 20220122
  Receipt Date: 20220122
  Transmission Date: 20220424
  Serious: Yes (Other)
  Sender: FDA-Public Use
  Company Number: None

PATIENT
  Age: 54 Year
  Sex: Female
  Weight: 94.5 kg

DRUGS (16)
  1. PAXLOVID [Suspect]
     Active Substance: NIRMATRELVIR\RITONAVIR
     Indication: COVID-19
     Dosage: FREQUENCY : TWICE A DAY;?
     Route: 048
     Dates: start: 20220118, end: 20220122
  2. METFORMIN [Concomitant]
     Active Substance: METFORMIN HYDROCHLORIDE
  3. GLIMEPIRIDE [Concomitant]
     Active Substance: GLIMEPIRIDE
  4. DILTIAZEM [Concomitant]
     Active Substance: DILTIAZEM
  5. JANUVIA [Concomitant]
     Active Substance: SITAGLIPTIN PHOSPHATE
  6. PRAVASTATIN [Concomitant]
     Active Substance: PRAVASTATIN
  7. LOSARTAN [Concomitant]
     Active Substance: LOSARTAN
  8. VITAMIN D [Concomitant]
     Active Substance: VITAMIN D NOS
  9. VITAMIN C [Concomitant]
     Active Substance: ASCORBIC ACID
  10. CALCIUM [Concomitant]
     Active Substance: CALCIUM
  11. VITAMIN C [Concomitant]
     Active Substance: ASCORBIC ACID
  12. ACIDOHILOUS [Concomitant]
  13. COENZYME Q10 [Concomitant]
     Active Substance: DIETARY SUPPLEMENT\UBIDECARENONE
  14. ASPIRIN [Concomitant]
     Active Substance: ASPIRIN
  15. MUCINEX [Concomitant]
     Active Substance: GUAIFENESIN
  16. ACETIMINOPHEN [Concomitant]

REACTIONS (2)
  - Dysgeusia [None]
  - Abdominal pain [None]

NARRATIVE: CASE EVENT DATE: 20220118
